FAERS Safety Report 4615130-9 (Version None)
Quarter: 2005Q1

REPORT INFORMATION
  Report Type: 
  Country: None (occurrence: None)
  Receive Date: 20050315
  Receipt Date: 20050308
  Transmission Date: 20050727
  Serious: Yes (Other)
  Sender: FDA-Public Use
  Company Number: K200500336

PATIENT
  Sex: Female

DRUGS (2)
  1. ALTACE [Suspect]
     Dosage: 5 MG, QD, ORAL
     Route: 048
     Dates: start: 20030506
  2. ACCUPRIL [Concomitant]

REACTIONS (2)
  - ADAMS-STOKES SYNDROME [None]
  - ATRIOVENTRICULAR BLOCK [None]
